FAERS Safety Report 4372672-1 (Version None)
Quarter: 2004Q2

REPORT INFORMATION
  Report Type: 
  Country: None (occurrence: None)
  Receive Date: 20040608
  Receipt Date: 20040527
  Transmission Date: 20050107
  Serious: Yes (Hospitalization)
  Sender: FDA-Public Use
  Company Number: CN-JNJFOC-20040506896

PATIENT
  Sex: Female
  Weight: 45 kg

DRUGS (1)
  1. INFLIXIMAB [Suspect]
     Indication: ANKYLOSING SPONDYLITIS
     Dosage: THE SUBJECT RECEIVED 3 INFLIXIMAB INFUSIONS IN TOTAL.
     Route: 041
     Dates: start: 20031217, end: 20040130

REACTIONS (3)
  - ALOPECIA [None]
  - ECZEMA [None]
  - ERYTHEMA [None]
